FAERS Safety Report 7590381-2 (Version None)
Quarter: 2011Q3

REPORT INFORMATION
  Report Type: 
  Country: None (occurrence: None)
  Receive Date: 20110705
  Receipt Date: 20110627
  Transmission Date: 20111222
  Serious: Yes (Death)
  Sender: FDA-Public Use
  Company Number: TH-BAYER-2011-044086

PATIENT
  Age: 56 Year
  Sex: Female

DRUGS (1)
  1. ULTRAVIST 370 [Suspect]
     Indication: COMPUTERISED TOMOGRAM ABDOMEN
     Dosage: 50 ML, ONCE
     Route: 042
     Dates: start: 20110523, end: 20110523

REACTIONS (2)
  - CHEST DISCOMFORT [None]
  - DYSPNOEA [None]
